FAERS Safety Report 7865812-0 (Version None)
Quarter: 2011Q4

REPORT INFORMATION
  Report Type: 
  Country: None (occurrence: None)
  Receive Date: 20111028
  Receipt Date: 20110301
  Transmission Date: 20120403
  Serious: No
  Sender: FDA-Public Use
  Company Number: US-GLAXOSMITHKLINE-A0916117A

PATIENT
  Age: 76 Year
  Sex: Male

DRUGS (11)
  1. ANTIOXIDANT [Concomitant]
     Indication: SUPPLEMENTATION THERAPY
  2. ADVAIR DISKUS 100/50 [Suspect]
     Indication: PRODUCT USED FOR UNKNOWN INDICATION
     Dosage: 1PUFF TWICE PER DAY
     Route: 055
     Dates: start: 20110228
  3. LISINOPRIL [Concomitant]
  4. PROBIOTIC [Concomitant]
  5. KLONOPIN [Concomitant]
  6. ROBITUSSIN DM [Concomitant]
  7. METOPROLOL TARTRATE [Concomitant]
  8. FELODIPINE [Concomitant]
  9. NEOMYCIN EAR DROPS [Concomitant]
  10. LEVOTHYROXINE SODIUM [Concomitant]
  11. PLAVIX [Concomitant]

REACTIONS (1)
  - THROAT IRRITATION [None]
